FAERS Safety Report 23638659 (Version 1)
Quarter: 2024Q1

REPORT INFORMATION
  Report Type: Spontaneous
  Country: IT (occurrence: IT)
  Receive Date: 20240315
  Receipt Date: 20240315
  Transmission Date: 20240410
  Serious: Yes (Hospitalization, Other)
  Sender: FDA-Public Use
  Company Number: IT-SUN PHARMACEUTICAL INDUSTRIES LTD-2024RR-436859

PATIENT
  Age: 59 Year
  Sex: Male

DRUGS (2)
  1. METFORMIN [Suspect]
     Active Substance: METFORMIN HYDROCHLORIDE
     Indication: Drug abuse
     Dosage: 4000 MILLIGRAM
     Route: 048
     Dates: start: 20231009, end: 20231009
  2. ASPIRIN [Suspect]
     Active Substance: ASPIRIN
     Indication: Drug abuse
     Dosage: 400 MILLIGRAM
     Route: 048
     Dates: start: 20231009, end: 20231009

REACTIONS (3)
  - Toxicity to various agents [Recovered/Resolved]
  - Dyspnoea [Recovered/Resolved]
  - Drug abuse [Recovered/Resolved]
